FAERS Safety Report 6066699-1 (Version None)
Quarter: 2009Q1

REPORT INFORMATION
  Report Type: 
  Country: None (occurrence: None)
  Receive Date: 20090205
  Receipt Date: 20080215
  Transmission Date: 20090719
  Serious: No
  Sender: FDA-Public Use
  Company Number: US-ABBOTT-08P-163-0439087-00

PATIENT
  Age: 79 Year
  Sex: Female
  Weight: 81.72 kg

DRUGS (2)
  1. VICODIN [Suspect]
     Indication: PAIN
     Dates: start: 20080107
  2. FERROUS SULFATE TAB [Suspect]
     Indication: DRUG USE FOR UNKNOWN INDICATION
     Route: 048
     Dates: start: 20080107

REACTIONS (2)
  - RASH [None]
  - RASH MACULAR [None]
